FAERS Safety Report 14976326 (Version 1)
Quarter: 2018Q2

REPORT INFORMATION
  Report Type: Spontaneous
  Country: US (occurrence: US)
  Receive Date: 20180605
  Receipt Date: 20180605
  Transmission Date: 20180711
  Serious: No
  Sender: FDA-Public Use
  Company Number: US-ROCHE-1973176

PATIENT
  Sex: Female

DRUGS (6)
  1. METHOTREXATE. [Concomitant]
     Active Substance: METHOTREXATE
  2. SIMPONI [Concomitant]
     Active Substance: GOLIMUMAB
     Dosage: LAST ONE ON 04/MAR/2016
     Route: 065
  3. ENBREL [Concomitant]
     Active Substance: ETANERCEPT
  4. ACTEMRA [Suspect]
     Active Substance: TOCILIZUMAB
     Indication: JUVENILE IDIOPATHIC ARTHRITIS
     Route: 065
     Dates: start: 201309, end: 201312
  5. HUMIRA [Concomitant]
     Active Substance: ADALIMUMAB
  6. ORENCIA [Concomitant]
     Active Substance: ABATACEPT
     Route: 065
     Dates: start: 20160429, end: 20170616

REACTIONS (1)
  - Neutropenia [Unknown]
